FAERS Safety Report 7802752-7 (Version None)
Quarter: 2011Q4

REPORT INFORMATION
  Report Type: 
  Country: None (occurrence: None)
  Receive Date: 20111007
  Receipt Date: 20110922
  Transmission Date: 20120403
  Serious: Yes (Other)
  Sender: FDA-Public Use
  Company Number: PHHY2011BR84950

PATIENT
  Age: 61 Year
  Sex: Male
  Weight: 98 kg

DRUGS (8)
  1. DIOVAN [Suspect]
     Dosage: 160 MG,
  2. SIMVASTATIN [Suspect]
     Dosage: 20 MG
  3. ASPIRIN [Suspect]
     Dosage: 100 MG
  4. HYDROCHLOROTHIAZIDE [Suspect]
     Dosage: 12.5 MG
  5. AMLODIPINE [Suspect]
     Dosage: 5 MG
  6. ROSUVASTATIN [Concomitant]
     Dosage: 20 MG, DAILY
  7. RASILEZ (ALISKIREN) [Concomitant]
     Dosage: 300 MG
  8. ROSUVASTATIN [Concomitant]
     Dosage: 10 MG, DAILY

REACTIONS (11)
  - DYSPNOEA [None]
  - BLOOD PRESSURE INCREASED [None]
  - BLOOD CREATINE INCREASED [None]
  - RENAL ARTERY STENOSIS [None]
  - LEFT VENTRICULAR HYPERTROPHY [None]
  - PEDAL PULSE ABNORMAL [None]
  - BLOOD PRESSURE DIFFERENCE OF EXTREMITIES [None]
  - ASTHENIA [None]
  - FATIGUE [None]
  - BODY MASS INDEX INCREASED [None]
  - POOR QUALITY SLEEP [None]
